FAERS Safety Report 14127570 (Version 4)
Quarter: 2018Q2

REPORT INFORMATION
  Report Type: Spontaneous
  Country: US (occurrence: US)
  Receive Date: 20171026
  Receipt Date: 20180507
  Transmission Date: 20180711
  Serious: No
  Sender: FDA-Public Use
  Company Number: US-BRISTOL-MYERS SQUIBB COMPANY-BMS-2017-096393

PATIENT
  Sex: Female

DRUGS (1)
  1. SPRYCEL [Suspect]
     Active Substance: DASATINIB
     Indication: CHRONIC MYELOID LEUKAEMIA
     Dosage: 100 MG, QD
     Route: 048
     Dates: start: 201709

REACTIONS (12)
  - Infection [Unknown]
  - Dyspnoea [Recovered/Resolved with Sequelae]
  - Feeling cold [Unknown]
  - Wheezing [Recovered/Resolved with Sequelae]
  - Abdominal discomfort [Unknown]
  - Weight decreased [Unknown]
  - Skin discolouration [Not Recovered/Not Resolved]
  - Decreased appetite [Unknown]
  - Tremor [Unknown]
  - Pyrexia [Recovered/Resolved with Sequelae]
  - Morphoea [Not Recovered/Not Resolved]
  - Fatigue [Unknown]
